FAERS Safety Report 11544253 (Version 2)
Quarter: 2015Q4

REPORT INFORMATION
  Report Type: Spontaneous
  Country: FR (occurrence: FR)
  Receive Date: 20150924
  Receipt Date: 20151012
  Transmission Date: 20160304
  Serious: Yes (Hospitalization, Other)
  Sender: FDA-Public Use
  Company Number: FR-ACCORD-033881

PATIENT
  Age: 49 Year
  Sex: Male

DRUGS (16)
  1. ETOPOSIDE MYLAN [Suspect]
     Active Substance: ETOPOSIDE
     Indication: LUNG CARCINOMA CELL TYPE UNSPECIFIED STAGE IV
     Dosage: STRENGTH: 20 MG/ML??NON MAH PRODUCT
     Route: 042
     Dates: start: 20150725, end: 20150727
  2. MOVICOL [Concomitant]
     Active Substance: POLYETHYLENE GLYCOL 3350\POTASSIUM CHLORIDE\SODIUM BICARBONATE\SODIUM CHLORIDE
  3. SUBUTEX [Concomitant]
     Active Substance: BUPRENORPHINE HYDROCHLORIDE
  4. FUNGIZON [Concomitant]
  5. ALPRAZOLAM. [Concomitant]
     Active Substance: ALPRAZOLAM
  6. CISPLATIN ACCORD [Suspect]
     Active Substance: CISPLATIN
     Indication: LUNG CARCINOMA CELL TYPE UNSPECIFIED STAGE IV
     Dosage: 1 MG/ML
     Route: 042
     Dates: start: 20150726
  7. ENDOXAN [Suspect]
     Active Substance: CYCLOPHOSPHAMIDE
     Indication: LUNG CARCINOMA CELL TYPE UNSPECIFIED STAGE IV
     Dosage: STRENGTH: 1000 MG
     Route: 042
     Dates: start: 20150726, end: 20150811
  8. SPIRIVA [Concomitant]
     Active Substance: TIOTROPIUM BROMIDE MONOHYDRATE
  9. ECONAZOLE [Concomitant]
     Active Substance: ECONAZOLE
  10. THIOCOLCHICOSIDE [Concomitant]
     Active Substance: THIOCOLCHICOSIDE
  11. SYMBICORT [Concomitant]
     Active Substance: BUDESONIDE\FORMOTEROL FUMARATE DIHYDRATE
  12. IMOVANE [Concomitant]
     Active Substance: ZOPICLONE
  13. TRAMADOL/TRAMADOL HYDROCHLORIDE [Concomitant]
     Dosage: TRAMADOL BASE
  14. DOXORUBICINE TEVA [Suspect]
     Active Substance: DOXORUBICIN
     Indication: LUNG CARCINOMA CELL TYPE UNSPECIFIED STAGE IV
     Dosage: IN A SINGLE DOSE,?STRENGTH: 50 MG/25ML?NON MAH PRODUCT
     Route: 042
     Dates: start: 20150725, end: 20150811
  15. AMPHOTERICIN B/AMPHOTERICIN B/LIPOSOME [Concomitant]
  16. EDUCTYL [Concomitant]
     Active Substance: POTASSIUM BITARTRATE\SODIUM BICARBONATE

REACTIONS (2)
  - Thrombocytopenia [Recovered/Resolved]
  - Pancytopenia [Recovered/Resolved]

NARRATIVE: CASE EVENT DATE: 20150804
